FAERS Safety Report 7820235-5 (Version None)
Quarter: 2011Q4

REPORT INFORMATION
  Report Type: 
  Country: None (occurrence: None)
  Receive Date: 20111018
  Receipt Date: 20111008
  Transmission Date: 20120403
  Serious: Yes (Hospitalization)
  Sender: FDA-Public Use
  Company Number: US-CELGENEUS-163-21880-11101153

PATIENT
  Sex: Male
  Weight: 89.2 kg

DRUGS (3)
  1. RANEXA [Concomitant]
     Route: 065
  2. REVLIMID [Suspect]
     Dosage: 25 MILLIGRAM
     Route: 048
     Dates: start: 20110211
  3. REVLIMID [Suspect]
     Indication: MULTIPLE MYELOMA
     Dosage: 25 MILLIGRAM
     Route: 048
     Dates: start: 20081007, end: 20090124

REACTIONS (2)
  - SYNCOPE [None]
  - CARDIAC DISORDER [None]
